FAERS Safety Report 23307177 (Version 1)
Quarter: 2023Q4

REPORT INFORMATION
  Report Type: Spontaneous
  Country: US (occurrence: US)
  Receive Date: 20231218
  Receipt Date: 20231218
  Transmission Date: 20240109
  Serious: Yes (Other)
  Sender: FDA-Public Use
  Company Number: US-SA-SAC20231214001044

PATIENT
  Age: 87 Year
  Sex: Female

DRUGS (1)
  1. DUPIXENT [Suspect]
     Active Substance: DUPILUMAB
     Indication: Neurodermatitis
     Dosage: 300 MG, QOW
     Route: 058
     Dates: start: 202309

REACTIONS (4)
  - Dementia [Unknown]
  - Swelling [Unknown]
  - Erythema [Unknown]
  - Skin irritation [Unknown]

NARRATIVE: CASE EVENT DATE: 20230101
